FAERS Safety Report 22741017 (Version 2)
Quarter: 2023Q4

REPORT INFORMATION
  Report Type: Spontaneous
  Country: US (occurrence: US)
  Receive Date: 20230724
  Receipt Date: 20231027
  Transmission Date: 20240110
  Serious: No
  Sender: FDA-Public Use
  Company Number: US-SA-SAC20230718000510

PATIENT
  Age: 65 Year
  Sex: Female
  Weight: 51 kg

DRUGS (11)
  1. DUPIXENT [Suspect]
     Active Substance: DUPILUMAB
     Indication: Dermatitis atopic
     Dosage: 300 MG, QOW
     Route: 058
     Dates: start: 20230621, end: 2023
  2. CELECOXIB [Concomitant]
     Active Substance: CELECOXIB
  3. CELECOXIB [Concomitant]
     Active Substance: CELECOXIB
  4. ESZOPICLONE [Concomitant]
     Active Substance: ESZOPICLONE
  5. ESZOPICLONE [Concomitant]
     Active Substance: ESZOPICLONE
  6. EZETIMIBE [Concomitant]
     Active Substance: EZETIMIBE
  7. EZETIMIBE [Concomitant]
     Active Substance: EZETIMIBE
  8. LISINOPRIL [Concomitant]
     Active Substance: LISINOPRIL
  9. LISINOPRIL [Concomitant]
     Active Substance: LISINOPRIL
  10. CLOBETASOL PROPIONATE [Concomitant]
     Active Substance: CLOBETASOL PROPIONATE
     Dosage: UNK
  11. TACROLIMUS [Concomitant]
     Active Substance: TACROLIMUS
     Dosage: UNK

REACTIONS (2)
  - Helicobacter infection [Unknown]
  - Rash [Not Recovered/Not Resolved]

NARRATIVE: CASE EVENT DATE: 20230704
